FAERS Safety Report 11689750 (Version 4)
Quarter: 2015Q4

REPORT INFORMATION
  Report Type: Spontaneous
  Country: US (occurrence: US)
  Receive Date: 20151102
  Receipt Date: 20151124
  Transmission Date: 20160304
  Serious: Yes (Other)
  Sender: FDA-Public Use
  Company Number: US-GLAXOSMITHKLINE-US2015GSK154224

PATIENT
  Sex: Female

DRUGS (26)
  1. VANCOMYCIN [Suspect]
     Active Substance: VANCOMYCIN
  2. XANAX [Concomitant]
     Active Substance: ALPRAZOLAM
  3. COREG [Suspect]
     Active Substance: CARVEDILOL
     Dosage: 20 MG, QD
  4. AMOXICILLIN. [Suspect]
     Active Substance: AMOXICILLIN
  5. BENTYL [Concomitant]
     Active Substance: DICYCLOMINE HYDROCHLORIDE
  6. ERYTHROMYCIN. [Suspect]
     Active Substance: ERYTHROMYCIN
  7. ALTACE [Suspect]
     Active Substance: RAMIPRIL
  8. CODEINE [Suspect]
     Active Substance: CODEINE
  9. ULTRAM ER [Suspect]
     Active Substance: TRAMADOL HYDROCHLORIDE
  10. LOSARTAN POTASSIUM. [Concomitant]
     Active Substance: LOSARTAN POTASSIUM
  11. FLEXERIL [Concomitant]
     Active Substance: CYCLOBENZAPRINE HYDROCHLORIDE
  12. ZOFRAN [Concomitant]
     Active Substance: ONDANSETRON HYDROCHLORIDE
  13. XOPENEX HFA [Concomitant]
     Active Substance: LEVALBUTEROL TARTRATE
  14. LOTENSIN [Suspect]
     Active Substance: BENAZEPRIL HYDROCHLORIDE
  15. NORVASC [Concomitant]
     Active Substance: AMLODIPINE BESYLATE
  16. GABAPENTIN. [Concomitant]
     Active Substance: GABAPENTIN
  17. CLINDAMYCIN [Suspect]
     Active Substance: CLINDAMYCIN\CLINDAMYCIN PHOSPHATE
  18. DEMEROL [Suspect]
     Active Substance: MEPERIDINE HYDROCHLORIDE
  19. TETANUS VACCINE [Suspect]
     Active Substance: CLOSTRIDIUM TETANI TOXOID ANTIGEN (FORMALDEHYDE INACTIVATED)
  20. ATORVASTATIN [Concomitant]
     Active Substance: ATORVASTATIN
  21. XARELTO [Concomitant]
     Active Substance: RIVAROXABAN
  22. VALIUM [Suspect]
     Active Substance: DIAZEPAM
  23. SPIRONOLACTONE. [Concomitant]
     Active Substance: SPIRONOLACTONE
  24. BIOXIN [Suspect]
     Active Substance: INOSINE
  25. SOMA [Concomitant]
     Active Substance: CARISOPRODOL
  26. LOMOTIL [Concomitant]
     Active Substance: ATROPINE SULFATE\DIPHENOXYLATE HYDROCHLORIDE

REACTIONS (21)
  - Obstructive airways disorder [Unknown]
  - Gastrooesophageal reflux disease [Unknown]
  - Essential hypertension [Unknown]
  - Coronary artery occlusion [Unknown]
  - Pyrexia [Unknown]
  - Vomiting [Unknown]
  - Palpitations [Unknown]
  - Hypertension [Unknown]
  - Atrial flutter [Unknown]
  - Mitral valve prolapse [Unknown]
  - Medical device implantation [Unknown]
  - Bronchitis chronic [Unknown]
  - Diverticulum [Unknown]
  - Drug hypersensitivity [Unknown]
  - Scoliosis [Unknown]
  - Lung disorder [Unknown]
  - Allergy to vaccine [Unknown]
  - Diarrhoea [Unknown]
  - Rash [Unknown]
  - Throat tightness [Unknown]
  - Exposure to toxic agent [Unknown]

NARRATIVE: CASE EVENT DATE: 2007
